FAERS Safety Report 4950310-4 (Version None)
Quarter: 2006Q1

REPORT INFORMATION
  Report Type: 
  Country: None (occurrence: None)
  Receive Date: 20060315
  Receipt Date: 20060301
  Transmission Date: 20060701
  Serious: Yes (Life-Threatening)
  Sender: FDA-Public Use
  Company Number: JP200601001687

PATIENT
  Age: 54 Year
  Sex: Male

DRUGS (6)
  1. ZYPREXA [Suspect]
     Indication: SCHIZOPHRENIA
     Dosage: 20 MG, DAILY (1/D), ORAL
     Route: 048
     Dates: start: 20050901
  2. RISPERDAL /SWE/ (RISPERIDONE) GRANULE [Concomitant]
  3. SEROQUEL (QUETIAPINE FUMARATE) GRANULE [Concomitant]
  4. SULPIRIDE (SULPIRIDE) GRANULE [Concomitant]
  5. TASMOLIN (BIPERIDEN) POWDER [Concomitant]
  6. TREMIN (TRIHEXYPHENIDYL HYDROCHLORIDE) POWDER [Concomitant]

REACTIONS (5)
  - CONDITION AGGRAVATED [None]
  - DIZZINESS [None]
  - FALL [None]
  - HYPOGLYCAEMIC COMA [None]
  - SCHIZOPHRENIA [None]
